FAERS Safety Report 11109773 (Version 1)
Quarter: 2015Q2

REPORT INFORMATION
  Report Type: Report from Study
  Country: LB (occurrence: LB)
  Receive Date: 20150513
  Receipt Date: 20150513
  Transmission Date: 20150821
  Serious: Yes (Other)
  Sender: FDA-Public Use
  Company Number: LB-MYLANLABS-2015M1015867

PATIENT

DRUGS (4)
  1. LEVETIRACETAM. [Suspect]
     Active Substance: LEVETIRACETAM
     Dosage: 42 MG/KG/DAY; THE DOSE WAS FURTHER INCREASED TO 750 MG/DAY (63 MG/KG/DAY)
     Route: 065
  2. LEVETIRACETAM. [Suspect]
     Active Substance: LEVETIRACETAM
     Dosage: 750 MG/DAY (63 MG/KG/DAY)
     Route: 065
  3. LEVETIRACETAM. [Suspect]
     Active Substance: LEVETIRACETAM
     Indication: MYOCLONIC EPILEPSY
     Dosage: 21 MG/KG/DAY, AND THE DOSE WAS UPTITRATED TO 500 MG/DAY (42 MG/KG/DAY)
     Route: 065
  4. VALPROATE [Concomitant]
     Active Substance: VALPROATE SODIUM
     Indication: GENERALISED TONIC-CLONIC SEIZURE
     Route: 065

REACTIONS (3)
  - Atonic seizures [Recovered/Resolved]
  - Myoclonic epilepsy [Recovered/Resolved]
  - Condition aggravated [Recovered/Resolved]
